FAERS Safety Report 14083242 (Version 2)
Quarter: 2018Q1

REPORT INFORMATION
  Report Type: Spontaneous
  Country: US (occurrence: US)
  Receive Date: 20171013
  Receipt Date: 20180126
  Transmission Date: 20180508
  Serious: No
  Sender: FDA-Public Use
  Company Number: US-LUNDBECK-DKLU2035810

PATIENT
  Age: 48 Year
  Sex: Male

DRUGS (4)
  1. NORTHERA [Suspect]
     Active Substance: DROXIDOPA
     Indication: HYPOTENSION
     Dosage: SCHEDULE C WITHOUT TITRATION
     Route: 065
     Dates: start: 2017
  2. NORTHERA [Suspect]
     Active Substance: DROXIDOPA
     Indication: HEPATITIS C
     Route: 048
     Dates: start: 20171004
  3. NORTHERA [Suspect]
     Active Substance: DROXIDOPA
     Indication: PLEURAL EFFUSION
  4. NORTHERA [Suspect]
     Active Substance: DROXIDOPA
     Indication: CHRONIC HEPATITIS C

REACTIONS (5)
  - Headache [Unknown]
  - Heart rate increased [Unknown]
  - Blood pressure increased [Unknown]
  - Vomiting [Unknown]
  - Retching [Unknown]

NARRATIVE: CASE EVENT DATE: 2017
